FAERS Safety Report 17241871 (Version 1)
Quarter: 2019Q4

REPORT INFORMATION
  Report Type: Spontaneous
  Country: US (occurrence: US)
  Receive Date: 20191212
  Receipt Date: 20191212
  Transmission Date: 20200122
  Serious: Yes (Death)
  Sender: FDA-Public Use
  Company Number: None

PATIENT
  Age: 81 Year
  Sex: Male

DRUGS (5)
  1. METOPROL TAR [Concomitant]
  2. ESBRIET [Suspect]
     Active Substance: PIRFENIDONE
     Route: 048
     Dates: start: 20181221, end: 20191207
  3. ATORVASTATIN [Concomitant]
     Active Substance: ATORVASTATIN
  4. PHENAZOPYRID [Concomitant]
  5. HYDROXYCHOLOR [Concomitant]

REACTIONS (2)
  - Post procedural complication [None]
  - Disease progression [None]

NARRATIVE: CASE EVENT DATE: 20191207
